FAERS Safety Report 14658448 (Version 9)
Quarter: 2020Q2

REPORT INFORMATION
  Report Type: Spontaneous
  Country: US (occurrence: US)
  Receive Date: 20180320
  Receipt Date: 20200630
  Transmission Date: 20200713
  Serious: Yes (Death, Other)
  Sender: FDA-Public Use
  Company Number: US-PFIZER INC-2018098249

PATIENT
  Age: 42 Year
  Sex: Female

DRUGS (1)
  1. IBRANCE [Suspect]
     Active Substance: PALBOCICLIB
     Indication: BREAST CANCER METASTATIC
     Dosage: UNK
     Dates: start: 201703

REACTIONS (12)
  - Horner^s syndrome [Unknown]
  - Hypersensitivity [Unknown]
  - Fatigue [Unknown]
  - White blood cell count decreased [Unknown]
  - Red blood cell count decreased [Unknown]
  - Influenza [Unknown]
  - Stress [Unknown]
  - Stomatitis [Unknown]
  - Somnolence [Unknown]
  - Disturbance in attention [Unknown]
  - Neoplasm progression [Fatal]
  - Confusional state [Unknown]
